FAERS Safety Report 8840983 (Version 1)
Quarter: 2012Q4

REPORT INFORMATION
  Report Type: 
  Country: US (occurrence: US)
  Receive Date: 20121015
  Receipt Date: 20121015
  Transmission Date: 20130627
  Serious: Yes (Death)
  Sender: FDA-Public Use
  Company Number: US-ROCHE-1136704

PATIENT
  Sex: Female

DRUGS (3)
  1. TNKASE [Suspect]
     Indication: ACUTE MYOCARDIAL INFARCTION
     Route: 065
     Dates: start: 20111012, end: 20111012
  2. TNKASE [Suspect]
     Indication: SHOCK
  3. TNKASE [Suspect]
     Indication: ACUTE MYOCARDIAL INFARCTION

REACTIONS (2)
  - Acute myocardial infarction [Fatal]
  - Drug ineffective [Unknown]
